FAERS Safety Report 4985739-1 (Version None)
Quarter: 2006Q2

REPORT INFORMATION
  Report Type: 
  Country: None (occurrence: None)
  Receive Date: 20060421
  Receipt Date: 20060412
  Transmission Date: 20061013
  Serious: Yes (Hospitalization, Disabling)
  Sender: FDA-Public Use
  Company Number: 199911067GDS

PATIENT
  Age: 52 Year
  Sex: Female

DRUGS (1)
  1. CIPRO [Suspect]
     Indication: URINARY TRACT INFECTION
     Dosage: 1000 MG, TOTAL DAILY; ORAL
     Route: 048
     Dates: start: 19991207, end: 19991217

REACTIONS (3)
  - DYSGEUSIA [None]
  - GLOSSITIS [None]
  - WEIGHT DECREASED [None]
